FAERS Safety Report 5841360-4 (Version None)
Quarter: 2008Q3

REPORT INFORMATION
  Report Type: 
  Country: None (occurrence: None)
  Receive Date: 20080812
  Receipt Date: 20080803
  Transmission Date: 20090109
  Serious: Yes (Other)
  Sender: FDA-Public Use
  Company Number: JP-KINGPHARMUSA00001-K200800913

PATIENT

DRUGS (1)
  1. AVINZA [Suspect]
     Indication: PAIN
     Dosage: UNK, 2 DAYS
     Route: 048

REACTIONS (4)
  - AMMONIA INCREASED [None]
  - CONSTIPATION [None]
  - HEPATIC ENCEPHALOPATHY [None]
  - LOSS OF CONSCIOUSNESS [None]
